FAERS Safety Report 5039466-5 (Version None)
Quarter: 2006Q2

REPORT INFORMATION
  Report Type: 
  Country: None (occurrence: None)
  Receive Date: 20060629
  Receipt Date: 20041103
  Transmission Date: 20061013
  Serious: Yes (Other)
  Sender: FDA-Public Use
  Company Number: PHNU2004DE03725

PATIENT
  Age: 88 Year
  Sex: Male
  Weight: 58 kg

DRUGS (3)
  1. BENDAMUSTINE [Concomitant]
     Indication: PLASMACYTOMA
     Dosage: 75 MG, QMO
     Dates: start: 20031218, end: 20041008
  2. PREDNISOLONE [Concomitant]
     Indication: PLASMACYTOMA
     Dosage: 60 MG, QMO
     Route: 048
     Dates: start: 20031218, end: 20041008
  3. ZOMETA [Suspect]
     Indication: MULTIPLE MYELOMA
     Dosage: 4 MG, QMO
     Dates: start: 20030714, end: 20041004

REACTIONS (4)
  - DENTAL TREATMENT [None]
  - GINGIVAL ULCERATION [None]
  - OSTEONECROSIS [None]
  - PERIODONTITIS [None]
